FAERS Safety Report 13916773 (Version 1)
Quarter: 2017Q3

REPORT INFORMATION
  Report Type: Spontaneous
  Country: US (occurrence: US)
  Receive Date: 20170829
  Receipt Date: 20170829
  Transmission Date: 20171127
  Serious: No
  Sender: FDA-Public Use
  Company Number: US-PFIZER INC-2017366853

PATIENT
  Sex: Female

DRUGS (1)
  1. DILTIAZEM HCL [Suspect]
     Active Substance: DILTIAZEM HYDROCHLORIDE
     Dosage: 1 DF, SINGLE (ONLY TOOK ONE DOSE OF DILTIAZEM)

REACTIONS (3)
  - Blood pressure abnormal [Unknown]
  - Vomiting [Unknown]
  - Diarrhoea [Unknown]
